FAERS Safety Report 22694658 (Version 5)
Quarter: 2023Q4

REPORT INFORMATION
  Report Type: Report from Study
  Country: JP (occurrence: JP)
  Receive Date: 20230712
  Receipt Date: 20231027
  Transmission Date: 20240110
  Serious: Yes (Death, Hospitalization)
  Sender: FDA-Public Use
  Company Number: JP-002147023-NVSJ2023JP011026

PATIENT
  Age: 65 Year
  Sex: Female
  Weight: 37 kg

DRUGS (6)
  1. ILARIS [Suspect]
     Active Substance: CANAKINUMAB
     Indication: Still^s disease
     Dosage: 150 MG
     Route: 058
     Dates: start: 20230627
  2. NEORAL [Concomitant]
     Active Substance: CYCLOSPORINE
     Indication: Still^s disease
     Dosage: UNK
     Route: 048
  3. DEXAMETHASONE [Concomitant]
     Active Substance: DEXAMETHASONE
     Indication: Still^s disease
     Dosage: UNK
     Route: 065
  4. METHOTREXATE [Concomitant]
     Active Substance: METHOTREXATE
     Indication: Still^s disease
     Dosage: UNK
     Route: 048
  5. TACROLIMUS [Concomitant]
     Active Substance: TACROLIMUS
     Indication: Still^s disease
     Dosage: UNK
     Route: 048
  6. ETOPOSIDE [Concomitant]
     Active Substance: ETOPOSIDE
     Indication: Still^s disease
     Route: 065

REACTIONS (6)
  - Still^s disease [Fatal]
  - Lymphocyte count decreased [Fatal]
  - Haemoglobin decreased [Fatal]
  - Depressed level of consciousness [Fatal]
  - Slow response to stimuli [Fatal]
  - Condition aggravated [Fatal]

NARRATIVE: CASE EVENT DATE: 20230707
